FAERS Safety Report 8548168-X (Version None)
Quarter: 2012Q3

REPORT INFORMATION
  Report Type: 
  Country: None (occurrence: None)
  Receive Date: 20120730
  Receipt Date: 20120720
  Transmission Date: 20120928
  Serious: Yes (Hospitalization)
  Sender: FDA-Public Use
  Company Number: US-BIOGENIDEC-2012BI001529

PATIENT
  Age: 32 Year
  Sex: Female

DRUGS (4)
  1. AVONEX [Suspect]
     Indication: MULTIPLE SCLEROSIS
     Route: 030
     Dates: start: 19980723
  2. AVONEX [Suspect]
     Route: 030
     Dates: start: 20030801, end: 20050901
  3. AVONEX [Suspect]
     Route: 030
     Dates: start: 20080601
  4. AVONEX [Suspect]
     Route: 030
     Dates: start: 20020701, end: 20030801

REACTIONS (4)
  - ROAD TRAFFIC ACCIDENT [None]
  - POST CONCUSSION SYNDROME [None]
  - AMNESIA [None]
  - INFLUENZA LIKE ILLNESS [None]
